FAERS Safety Report 6346347-3 (Version None)
Quarter: 2009Q3

REPORT INFORMATION
  Report Type: 
  Country: None (occurrence: None)
  Receive Date: 20090821
  Receipt Date: 20090611
  Transmission Date: 20100115
  Serious: No
  Sender: FDA-Public Use
  Company Number: 8047717

PATIENT
  Age: 36 Year
  Sex: Female
  Weight: 61.2 kg

DRUGS (9)
  1. CIMZIA [Suspect]
     Indication: CROHN'S DISEASE
     Dosage: 400 MG 1/2W SC
     Route: 058
     Dates: start: 20090525
  2. ENTOCORT EC [Concomitant]
  3. IMURAN [Concomitant]
  4. ASPIRIN [Concomitant]
  5. ESTROGEN ESTRADIOL [Concomitant]
  6. OXYCODONE [Concomitant]
  7. LORTAB [Concomitant]
  8. TRAMADOL HCL [Concomitant]
  9. ZOLOFT [Concomitant]

REACTIONS (5)
  - ARTHRALGIA [None]
  - DYSPEPSIA [None]
  - DYSURIA [None]
  - PAIN [None]
  - PAIN IN EXTREMITY [None]
